FAERS Safety Report 6231942-2 (Version None)
Quarter: 2009Q2

REPORT INFORMATION
  Report Type: 
  Country: None (occurrence: None)
  Receive Date: 20090616
  Receipt Date: 20090610
  Transmission Date: 20091009
  Serious: Yes (Hospitalization)
  Sender: FDA-Public Use
  Company Number: FR-ABBOTT-09P-056-0578911-00

PATIENT
  Sex: Female

DRUGS (1)
  1. VERCYTE TABLETS [Suspect]
     Indication: ESSENTIAL THROMBOCYTHAEMIA
     Dosage: 1 TO 2 TABLETS/D
     Dates: start: 20040101

REACTIONS (1)
  - OESOPHAGITIS [None]
